FAERS Safety Report 8799560 (Version 1)
Quarter: 2012Q4

REPORT INFORMATION
  Report Type: Spontaneous
  Country: GB (occurrence: None)
  Receive Date: 20120914
  Receipt Date: 20120914
  Transmission Date: 20130627
  Serious: Yes (Other)
  Sender: FDA-Public Use
  Company Number: GER/UKI/12/0025812

PATIENT
  Age: 92 Year
  Sex: Female

DRUGS (5)
  1. OLANZAPINE [Suspect]
     Indication: PSYCHOSIS
     Route: 048
     Dates: start: 20120703, end: 20120801
  2. ADCAL (CARBAZOCHROME) [Concomitant]
  3. ASPIRIN (ACETYLSALICYLIC ACID) [Concomitant]
  4. CO-AMILOFRUSE (FRUMIL) [Concomitant]
  5. PROPRANOLOL (PROPRANOLOL) [Concomitant]

REACTIONS (2)
  - Jaundice cholestatic [None]
  - Cholelithiasis [None]
